FAERS Safety Report 4649851-9 (Version None)
Quarter: 2005Q2

REPORT INFORMATION
  Report Type: 
  Country: None (occurrence: None)
  Receive Date: 20050427
  Receipt Date: 20050412
  Transmission Date: 20051028
  Serious: Yes (Hospitalization)
  Sender: FDA-Public Use
  Company Number: JP_030801544

PATIENT
  Age: 69 Year
  Sex: Male
  Weight: 74 kg

DRUGS (8)
  1. HUMALOG [Suspect]
     Indication: DIABETES MELLITUS NON-INSULIN-DEPENDENT
     Dosage: 4 U DAY
     Dates: start: 20020703
  2. HUMACART 3/7 (INSULIN) [Concomitant]
  3. MELBIN (MERFORMIN HYDROCHLORIDE) [Concomitant]
  4. ACTOS [Concomitant]
  5. LIPITOR [Concomitant]
  6. TAKEPRON (LANSOPRAOLE) [Concomitant]
  7. ASPIRIN [Concomitant]
  8. DIOVAN [Concomitant]

REACTIONS (2)
  - NEPHROLITHIASIS [None]
  - OPTIC NEURITIS RETROBULBAR [None]
